FAERS Safety Report 9279008 (Version 1)
Quarter: 2013Q2

REPORT INFORMATION
  Report Type: Spontaneous
  Country: ES (occurrence: ES)
  Receive Date: 20130508
  Receipt Date: 20130508
  Transmission Date: 20140414
  Serious: Yes (Life-Threatening)
  Sender: FDA-Public Use
  Company Number: PHHY2013ES045381

PATIENT
  Sex: Female
  Weight: 62 kg

DRUGS (2)
  1. AMOXICILLIN SODIUM+POTASSIUM CLAVULANATE SANDOZ [Suspect]
     Indication: PYREXIA
     Dosage: 3 G, DAILY; 1 DOSAGE FORM 3 TIMES A DAY
     Route: 042
     Dates: start: 20130311, end: 20130311
  2. CIPROFLOXACIN FRESENIUS KABI [Suspect]
     Indication: PYREXIA
     Dosage: 800 MG, DAILY
     Route: 042
     Dates: start: 20130311, end: 20130311

REACTIONS (3)
  - Convulsion [Recovered/Resolved]
  - Medication error [Unknown]
  - Incorrect dose administered [None]
